FAERS Safety Report 17671120 (Version 1)
Quarter: 2020Q2

REPORT INFORMATION
  Report Type: Spontaneous
  Country: IN (occurrence: IN)
  Receive Date: 20200415
  Receipt Date: 20200415
  Transmission Date: 20200713
  Serious: Yes (Death)
  Sender: FDA-Public Use
  Company Number: NVSC2020IN100468

PATIENT
  Age: 44 Year
  Sex: Male

DRUGS (2)
  1. TACSANT [Suspect]
     Active Substance: TACROLIMUS
     Indication: RENAL TRANSPLANT
     Dosage: 0.5 MG, BID
     Route: 065
     Dates: start: 20120909
  2. MYFORTIC [Suspect]
     Active Substance: MYCOPHENOLATE SODIUM
     Indication: RENAL TRANSPLANT
     Dosage: 540 MG, BID
     Route: 065
     Dates: start: 20120909

REACTIONS (1)
  - Death [Fatal]

NARRATIVE: CASE EVENT DATE: 20200313
